FAERS Safety Report 10150841 (Version 1)
Quarter: 2014Q2

REPORT INFORMATION
  Report Type: Spontaneous
  Country: NL (occurrence: NL)
  Receive Date: 20140502
  Receipt Date: 20140502
  Transmission Date: 20141212
  Serious: Yes (Hospitalization)
  Sender: FDA-Public Use
  Company Number: NL-PFIZER INC-2014119834

PATIENT
  Age: 64 Year
  Sex: Female

DRUGS (7)
  1. RELPAX [Suspect]
     Indication: MIGRAINE
     Dosage: 40 MG, 1X/DAY AS NEEDED
     Dates: start: 20140424, end: 20140424
  2. EFEXOR [Interacting]
     Indication: DEPRESSION
     Dosage: 75 MG, 1X/DAY
     Dates: start: 2013
  3. TRAMADOL [Concomitant]
     Dosage: 100 MG, 3X/DAY
  4. FLUVASTATIN [Concomitant]
     Dosage: 20 MG, 1X/DAY
  5. ASCAL [Concomitant]
     Dosage: 100 MG, 1X/DAY
  6. DIPYRIDAMOL [Concomitant]
     Dosage: 75 MG, 3X/DAY
  7. PANTOPRAZOL [Concomitant]
     Dosage: 40 MG, 1X/DAY

REACTIONS (4)
  - Confusional state [Recovered/Resolved]
  - Aggression [Recovered/Resolved]
  - Drug interaction [Recovered/Resolved]
  - Restlessness [Recovered/Resolved]
